FAERS Safety Report 7049496-X (Version None)
Quarter: 2010Q4

REPORT INFORMATION
  Report Type: 
  Country: None (occurrence: None)
  Receive Date: 20101018
  Receipt Date: 20101008
  Transmission Date: 20110411
  Serious: Yes (Other)
  Sender: FDA-Public Use
  Company Number: US-WYE-H18092510

PATIENT
  Sex: Male
  Weight: 116.68 kg

DRUGS (16)
  1. EFFEXOR [Suspect]
     Dosage: UNKNOWN
  2. LASIX [Concomitant]
  3. CRESTOR [Concomitant]
  4. GLIPIZIDE [Concomitant]
  5. TRAMADOL HCL [Concomitant]
  6. LISINOPRIL [Concomitant]
  7. GEMFIBROZIL [Concomitant]
  8. AMLODIPINE [Concomitant]
  9. ATENOLOL [Concomitant]
  10. OMEPRAZOLE [Concomitant]
  11. TERAZOSIN HCL [Concomitant]
     Indication: BENIGN PROSTATIC HYPERPLASIA
  12. ACETYLSALICYLIC ACID [Concomitant]
  13. METFORMIN [Concomitant]
  14. NORCO [Concomitant]
     Dosage: 10/325 MG, FREQUENCY UNKNOWN
  15. LYRICA [Suspect]
     Indication: FIBROMYALGIA
     Route: 048
     Dates: start: 20080101
  16. LYRICA [Suspect]
     Indication: DIABETIC NEUROPATHY
     Route: 048
     Dates: end: 20100901

REACTIONS (8)
  - ANXIETY [None]
  - BIPOLAR DISORDER [None]
  - CONDITION AGGRAVATED [None]
  - DEPRESSION [None]
  - HYPOAESTHESIA [None]
  - MALAISE [None]
  - PANIC ATTACK [None]
  - PARAESTHESIA [None]
